FAERS Safety Report 4822496-3 (Version None)
Quarter: 2005Q4

REPORT INFORMATION
  Report Type: 
  Country: None (occurrence: None)
  Receive Date: 20051104
  Receipt Date: 20051020
  Transmission Date: 20060501
  Serious: Yes (Hospitalization)
  Sender: FDA-Public Use
  Company Number: DSA_27306_2005

PATIENT
  Age: 22 Year
  Sex: Female

DRUGS (10)
  1. TEMESTA [Suspect]
     Dosage: DF PO
     Route: 048
     Dates: start: 20050603
  2. ABILIFY [Suspect]
     Dosage: 15 MG PO
     Route: 048
     Dates: start: 20050613, end: 20050621
  3. ABILIFY [Suspect]
     Dosage: 30 MG PO
     Route: 048
     Dates: start: 20050622, end: 20050729
  4. ABILIFY [Suspect]
     Dosage: 15 MG PO
     Route: 048
     Dates: start: 20050730, end: 20050731
  5. HALDOL [Concomitant]
  6. LAMICTAL [Concomitant]
  7. LAMICTAL [Concomitant]
  8. LAMICTAL [Concomitant]
  9. LAMICTAL [Concomitant]
  10. LAMICTAL [Concomitant]

REACTIONS (1)
  - BUNDLE BRANCH BLOCK RIGHT [None]
